FAERS Safety Report 8337457-X (Version None)
Quarter: 2012Q2

REPORT INFORMATION
  Report Type: 
  Country: None (occurrence: None)
  Receive Date: 20120504
  Receipt Date: 20120426
  Transmission Date: 20120825
  Serious: Yes (Other)
  Sender: FDA-Public Use
  Company Number: US-PFIZER INC-2012060267

PATIENT
  Sex: Female

DRUGS (2)
  1. LYRICA [Suspect]
     Indication: CONVULSION
     Dosage: UNK
  2. DILANTIN [Suspect]
     Dosage: UNK

REACTIONS (5)
  - ARTHROPATHY [None]
  - CONVULSION [None]
  - STRESS [None]
  - SUICIDAL IDEATION [None]
  - WEIGHT INCREASED [None]
